FAERS Safety Report 20645593 (Version 5)
Quarter: 2022Q2

REPORT INFORMATION
  Report Type: Report from Study
  Country: BR (occurrence: None)
  Receive Date: 20220328
  Receipt Date: 20220429
  Transmission Date: 20220721
  Serious: Yes (Hospitalization)
  Sender: FDA-Public Use
  Company Number: BR-ROCHE-3056684

PATIENT
  Age: 49 Year
  Sex: Male
  Weight: 68.3 kg

DRUGS (14)
  1. OBINUTUZUMAB [Suspect]
     Active Substance: OBINUTUZUMAB
     Indication: Follicular lymphoma
     Dosage: MOST RECENT DOSE OF STUDY DRUG 1 PRIOR TO AE ONSET 03/JAN/2022 1000 MG?(MAINTENANCE PERIOD)
     Route: 042
     Dates: start: 20200507
  2. CAFFEINE [Concomitant]
     Active Substance: CAFFEINE
     Indication: Pain
     Dates: start: 20220317, end: 20220323
  3. ACETAMINOPHEN [Concomitant]
     Active Substance: ACETAMINOPHEN
     Indication: Pain
  4. DIPYRONE [Concomitant]
     Active Substance: DIPYRONE
     Indication: Respiratory tract infection
     Dates: start: 20220122
  5. DIPYRONE [Concomitant]
     Active Substance: DIPYRONE
     Indication: COVID-19 pneumonia
     Dates: start: 20220317, end: 20220320
  6. DIPYRONE [Concomitant]
     Active Substance: DIPYRONE
     Indication: Lung disorder
     Dates: start: 20220220, end: 20220323
  7. ACYCLOVIR [Concomitant]
     Active Substance: ACYCLOVIR
     Indication: Oral herpes
     Dates: start: 20220318, end: 20220323
  8. METOCLOPRAMIDE [Concomitant]
     Active Substance: METOCLOPRAMIDE
     Indication: Nausea
     Dates: start: 20220317, end: 20220320
  9. METOCLOPRAMIDE [Concomitant]
     Active Substance: METOCLOPRAMIDE
     Indication: Vomiting
  10. OMEPRAZOLE [Concomitant]
     Active Substance: OMEPRAZOLE
     Indication: Prophylaxis against gastrointestinal ulcer
     Dates: start: 20220322, end: 20220323
  11. PREDNISONE [Concomitant]
     Active Substance: PREDNISONE
     Indication: COVID-19 pneumonia
     Dates: start: 20220204, end: 20220208
  12. PREDNISONE [Concomitant]
     Active Substance: PREDNISONE
     Indication: Lung disorder
     Dates: start: 20220209, end: 20220213
  13. PREDNISONE [Concomitant]
     Active Substance: PREDNISONE
     Dates: start: 20220318, end: 20220318
  14. PREDNISONE [Concomitant]
     Active Substance: PREDNISONE
     Dates: start: 20220319, end: 20220323

REACTIONS (1)
  - Bacteraemia [Recovered/Resolved]

NARRATIVE: CASE EVENT DATE: 20220317
